FAERS Safety Report 5156144-2 (Version None)
Quarter: 2006Q4

REPORT INFORMATION
  Report Type: 
  Country: None (occurrence: None)
  Receive Date: 20061114
  Receipt Date: 20061101
  Transmission Date: 20070319
  Serious: Yes (Death)
  Sender: FDA-Public Use
  Company Number: HQWYE385303NOV06

PATIENT
  Age: 61 Year
  Sex: 0

DRUGS (3)
  1. INDERAL [Suspect]
     Indication: DRUG USE FOR UNKNOWN INDICATION
     Dosage: ^ ACUTE ^
  2. DIPHENHYDRAMINE HCL [Suspect]
     Indication: DRUG USE FOR UNKNOWN INDICATION
     Dosage: ^ ACUTE ^
  3. HYDROCODONE (HYDROCODONE, ) [Suspect]
     Indication: DRUG USE FOR UNKNOWN INDICATION
     Dosage: ^ ACUTE ^

REACTIONS (2)
  - COMPLETED SUICIDE [None]
  - INTENTIONAL OVERDOSE [None]
